FAERS Safety Report 11789191 (Version 1)
Quarter: 2015Q4

REPORT INFORMATION
  Report Type: Spontaneous
  Country: US (occurrence: US)
  Receive Date: 20151201
  Receipt Date: 20151201
  Transmission Date: 20160305
  Serious: Yes (Hospitalization, Other)
  Sender: FDA-Public Use
  Company Number: US-ASTELLAS-2015US044566

PATIENT
  Age: 61 Year
  Sex: Male

DRUGS (4)
  1. TACROLIMUS. [Suspect]
     Active Substance: TACROLIMUS
     Indication: ANTISYNTHETASE SYNDROME
     Dosage: UNK UNK, UNKNOWN FREQ.
     Route: 065
  2. TACROLIMUS. [Suspect]
     Active Substance: TACROLIMUS
     Indication: MYOSITIS
  3. IMMUNOGLOBULIN I.V [Concomitant]
     Active Substance: HUMAN IMMUNOGLOBULIN G
     Indication: MYOSITIS
  4. IMMUNOGLOBULIN I.V [Concomitant]
     Active Substance: HUMAN IMMUNOGLOBULIN G
     Indication: ANTISYNTHETASE SYNDROME
     Dosage: UNK UNK, UNKNOWN FREQ.
     Route: 042

REACTIONS (6)
  - Renal tubular necrosis [Unknown]
  - Acute kidney injury [Unknown]
  - Off label use [Unknown]
  - Muscular weakness [Recovering/Resolving]
  - Hypotension [Unknown]
  - VIIth nerve paralysis [Unknown]
